FAERS Safety Report 11510045 (Version 2)
Quarter: 2015Q4

REPORT INFORMATION
  Report Type: Spontaneous
  Country: US (occurrence: US)
  Receive Date: 20150915
  Receipt Date: 20151013
  Transmission Date: 20160304
  Serious: No
  Sender: FDA-Public Use
  Company Number: US-JNJFOC-20150812988

PATIENT
  Age: 39 Year
  Sex: Female
  Weight: 58.06 kg

DRUGS (3)
  1. MOTRIN IB [Suspect]
     Active Substance: IBUPROFEN
     Route: 048
  2. LEVOTHYROXINE. [Concomitant]
     Active Substance: LEVOTHYROXINE
     Indication: THYROID DISORDER
     Dosage: 100MCG IN MORNING
     Route: 065
  3. MOTRIN IB [Suspect]
     Active Substance: IBUPROFEN
     Indication: ARTHRALGIA
     Dosage: 3 CAPLETS, 3 TIMES A DAY, EVERY DAY (TOTAL OF 9 CAPLETS-MORING, AFTERNOON, BEDTIME)
     Route: 048

REACTIONS (4)
  - Overdose [Unknown]
  - Medication residue present [Unknown]
  - Drug effect decreased [Unknown]
  - Product quality issue [Unknown]
